FAERS Safety Report 20775265 (Version 5)
Quarter: 2022Q3

REPORT INFORMATION
  Report Type: Spontaneous
  Country: VN (occurrence: VN)
  Receive Date: 20220502
  Receipt Date: 20220718
  Transmission Date: 20221027
  Serious: Yes (Other)
  Sender: FDA-Public Use
  Company Number: VN-Eisai Medical Research-EC-2022-113738

PATIENT
  Age: 10 Year
  Sex: Male

DRUGS (6)
  1. FYCOMPA [Suspect]
     Active Substance: PERAMPANEL
     Indication: Epilepsy
     Route: 048
     Dates: start: 20220408, end: 20220423
  2. FYCOMPA [Suspect]
     Active Substance: PERAMPANEL
     Route: 048
     Dates: start: 20220424, end: 2022
  3. FYCOMPA [Suspect]
     Active Substance: PERAMPANEL
     Route: 048
     Dates: start: 20220522
  4. LERACET [Concomitant]
     Indication: Product used for unknown indication
     Dosage: 1500 MG DAILY (FREQUENCY UNKNOWN)
     Route: 065
  5. OXCARBAZEPINE [Concomitant]
     Active Substance: OXCARBAZEPINE
     Indication: Product used for unknown indication
     Dosage: 750 MG DAILY (FREQUENCY UNKNOWN)
     Route: 065
  6. RISPERDAL [Concomitant]
     Active Substance: RISPERIDONE
     Indication: Product used for unknown indication
     Dosage: 2 MG DAILY (FREQUENCY UNKNOWN)
     Route: 065

REACTIONS (3)
  - Seizure [Recovering/Resolving]
  - Somnolence [Recovered/Resolved]
  - Lethargy [Recovered/Resolved]

NARRATIVE: CASE EVENT DATE: 20220410
